FAERS Safety Report 10198355 (Version 1)
Quarter: 2014Q2

REPORT INFORMATION
  Report Type: Spontaneous
  Country: US (occurrence: US)
  Receive Date: 20140527
  Receipt Date: 20140527
  Transmission Date: 20141212
  Serious: No
  Sender: FDA-Public Use
  Company Number: US-NOVEN-13US007193

PATIENT
  Age: 8 Year
  Sex: Female

DRUGS (1)
  1. DAYTRANA [Suspect]
     Indication: ATTENTION DEFICIT/HYPERACTIVITY DISORDER
     Dosage: 10 MG, UNK
     Route: 062
     Dates: start: 20130523, end: 20130626

REACTIONS (8)
  - Application site irritation [Recovering/Resolving]
  - Application site pain [Recovered/Resolved]
  - Application site erythema [Recovering/Resolving]
  - Application site pruritus [Recovered/Resolved]
  - Application site swelling [Recovered/Resolved]
  - Application site vesicles [Recovered/Resolved]
  - Drug administration error [Recovered/Resolved]
  - Product quality issue [Recovered/Resolved]
